FAERS Safety Report 8724101 (Version 2)
Quarter: 2012Q4

REPORT INFORMATION
  Report Type: 
  Country: DE (occurrence: DE)
  Receive Date: 20120815
  Receipt Date: 20121115
  Transmission Date: 20130627
  Serious: Yes (Hospitalization)
  Sender: FDA-Public Use
  Company Number: DE-B.I. PHARMACEUTICALS,INC./RIDGEFIELD-2012-DE-01888DE

PATIENT
  Sex: Female
  Weight: 67 kg

DRUGS (5)
  1. PRADAXA [Suspect]
     Indication: ATRIAL FIBRILLATION
     Dosage: 200 mg
     Dates: start: 201101, end: 201103
  2. PRADAXA [Suspect]
     Indication: CARDIAC FLUTTER
     Dosage: 75 mg
     Dates: start: 201205, end: 201206
  3. PRADAXA [Suspect]
     Dosage: 220 mg
  4. HERBAL PREPARATION [Concomitant]
  5. DIGIMERCK PICO [Concomitant]
     Indication: ARRHYTHMIA
     Dosage: 0.05 mg
     Dates: start: 201101, end: 201211

REACTIONS (5)
  - Dysuria [Not Recovered/Not Resolved]
  - Bronchitis [Not Recovered/Not Resolved]
  - Renal pain [Unknown]
  - Abdominal discomfort [Unknown]
  - Drug intolerance [Unknown]
